FAERS Safety Report 12237466 (Version 1)
Quarter: 2016Q2

REPORT INFORMATION
  Report Type: Spontaneous
  Country: OM (occurrence: OM)
  Receive Date: 20160405
  Receipt Date: 20160405
  Transmission Date: 20160815
  Serious: Yes (Other)
  Sender: FDA-Public Use
  Company Number: OM-BAYER-2016-060261

PATIENT
  Age: 13 Year
  Sex: Female

DRUGS (8)
  1. CIPROFLOXACIN. [Suspect]
     Active Substance: CIPROFLOXACIN
     Indication: PERITONITIS BACTERIAL
  2. AMIKACIN [Concomitant]
     Active Substance: AMIKACIN
  3. LINEZOLID. [Concomitant]
     Active Substance: LINEZOLID
     Dosage: 10 MG, BID
     Route: 042
  4. VANCOMYCIN [Concomitant]
     Active Substance: VANCOMYCIN
     Route: 033
  5. MEROPENEM. [Concomitant]
     Active Substance: MEROPENEM
  6. CLOXACILLIN [Concomitant]
     Active Substance: CLOXACILLIN
     Route: 042
  7. AMPHOTERICIN [Concomitant]
     Active Substance: AMPHOTERICIN B
  8. CEFTAZIDIME. [Concomitant]
     Active Substance: CEFTAZIDIME

REACTIONS (4)
  - Drug ineffective for unapproved indication [None]
  - Cardiac arrest [None]
  - Off label use [None]
  - Septic shock [None]
